FAERS Safety Report 11629883 (Version 2)
Quarter: 2015Q4

REPORT INFORMATION
  Report Type: Spontaneous
  Country: US (occurrence: US)
  Receive Date: 20151014
  Receipt Date: 20151202
  Transmission Date: 20160304
  Serious: No
  Sender: FDA-Public Use
  Company Number: US-APOTEX-2015AP008072

PATIENT

DRUGS (1)
  1. FENTANYL TRANSDERMAL SYSTEM [Suspect]
     Active Substance: FENTANYL
     Indication: MIGRAINE
     Dosage: UNK
     Route: 062

REACTIONS (7)
  - Fatigue [Unknown]
  - Product adhesion issue [Unknown]
  - Nausea [Unknown]
  - Product substitution issue [Unknown]
  - Feeling abnormal [Unknown]
  - Urticaria [Unknown]
  - Feeling jittery [Unknown]

NARRATIVE: CASE EVENT DATE: 20150329
